FAERS Safety Report 4292901-2 (Version None)
Quarter: 2004Q1

REPORT INFORMATION
  Report Type: 
  Country: None (occurrence: None)
  Receive Date: 20040212
  Receipt Date: 20030722
  Transmission Date: 20041129
  Serious: No
  Sender: FDA-Public Use
  Company Number: US-GLAXOSMITHKLINE-A0417682A

PATIENT
  Sex: Female

DRUGS (5)
  1. PAXIL [Suspect]
     Indication: ANXIETY
     Dosage: 15MG PER DAY
     Route: 048
  2. PRILOSEC [Concomitant]
  3. TENORMIN [Concomitant]
  4. NORVASC [Concomitant]
  5. KLONOPIN [Concomitant]

REACTIONS (1)
  - WEIGHT INCREASED [None]
